FAERS Safety Report 5531261-3 (Version None)
Quarter: 2007Q4

REPORT INFORMATION
  Report Type: 
  Country: None (occurrence: None)
  Receive Date: 20071127
  Receipt Date: 20071115
  Transmission Date: 20080405
  Serious: Yes (Life-Threatening, Hospitalization)
  Sender: FDA-Public Use
  Company Number: 20070300

PATIENT
  Age: 87 Year
  Sex: Female

DRUGS (11)
  1. VENOFER [Suspect]
     Indication: ANAEMIA
     Dosage: 400 MG ONCE, INTRAVENOUS DRIP
     Route: 041
     Dates: start: 20070920, end: 20070920
  2. VENOFER [Suspect]
     Indication: DRUG INTOLERANCE
     Dosage: 400 MG ONCE, INTRAVENOUS DRIP
     Route: 041
     Dates: start: 20070920, end: 20070920
  3. VENOFER [Suspect]
     Indication: IRON DEFICIENCY
     Dosage: 400 MG ONCE, INTRAVENOUS DRIP
     Route: 041
     Dates: start: 20070920, end: 20070920
  4. VALSARTAN [Concomitant]
  5. CARVEDILOL [Concomitant]
  6. TORSEMIDE [Concomitant]
  7. ACETYLSALICYLIC ACID SRT [Concomitant]
  8. L-THYROXIN [Concomitant]
  9. BENZBROMARON [Concomitant]
  10. GLIMEPIRIDE [Concomitant]
  11. LYRICA [Concomitant]

REACTIONS (5)
  - HYPOTENSION [None]
  - INCORRECT DRUG ADMINISTRATION RATE [None]
  - LOSS OF CONSCIOUSNESS [None]
  - PULMONARY OEDEMA [None]
  - WRONG TECHNIQUE IN DRUG USAGE PROCESS [None]
